FAERS Safety Report 8949645 (Version 1)
Quarter: 2012Q4

REPORT INFORMATION
  Report Type: 
  Country: BR (occurrence: BR)
  Receive Date: 20121206
  Receipt Date: 20121206
  Transmission Date: 20130627
  Serious: Yes (Other)
  Sender: FDA-Public Use
  Company Number: BR-SANOFI-AVENTIS-2012SA087486

PATIENT
  Sex: Female

DRUGS (3)
  1. ALLEGRA [Suspect]
     Indication: DRUG USE FOR UNKNOWN INDICATION
     Route: 048
  2. KLARICID [Suspect]
     Indication: DRUG USE FOR UNKNOWN INDICATION
     Route: 048
  3. PULMICORT [Suspect]
     Indication: DRUG USE FOR UNKNOWN INDICATION
     Dosage: strength: 0.5 mg/ml, unspecified dose taken once
     Route: 055

REACTIONS (1)
  - Anaphylactic shock [Unknown]
